FAERS Safety Report 8465422-0 (Version None)
Quarter: 2012Q2

REPORT INFORMATION
  Report Type: 
  Country: None (occurrence: None)
  Receive Date: 20120626
  Receipt Date: 20120613
  Transmission Date: 20120825
  Serious: Yes (Hospitalization, Other)
  Sender: FDA-Public Use
  Company Number: PHHY2009DE12520

PATIENT
  Sex: Female
  Weight: 70 kg

DRUGS (4)
  1. BISO-HENNIG [Concomitant]
     Indication: HYPERTENSION
     Dosage: 2.5 MG, QD
     Route: 048
  2. DYTIDE [Concomitant]
     Indication: HYPERTENSION
     Dosage: 50 MG, QD
     Route: 048
  3. TASIGNA [Suspect]
     Indication: CHRONIC MYELOID LEUKAEMIA
     Dosage: 800 MG, QD
     Route: 048
     Dates: start: 20080327, end: 20120515
  4. OMEPRAZOLE [Concomitant]
     Indication: PROPHYLAXIS
     Dosage: 20 MG, QD
     Route: 048
     Dates: start: 20080128

REACTIONS (14)
  - ATRIAL FIBRILLATION [None]
  - THROMBOPHLEBITIS [None]
  - INFLUENZA [None]
  - GASTROOESOPHAGEAL REFLUX DISEASE [None]
  - PERIPHERAL EMBOLISM [None]
  - PAIN IN EXTREMITY [None]
  - PERIPHERAL ARTERIAL OCCLUSIVE DISEASE [None]
  - FEMORAL ARTERIAL STENOSIS [None]
  - DEPRESSION [None]
  - PRURITUS [None]
  - DRY SKIN [None]
  - BONE PAIN [None]
  - ILIAC ARTERY THROMBOSIS [None]
  - THROMBOCYTOPENIA [None]
